FAERS Safety Report 8075731-5 (Version None)
Quarter: 2012Q1

REPORT INFORMATION
  Report Type: 
  Country: None (occurrence: None)
  Receive Date: 20120127
  Receipt Date: 20111126
  Transmission Date: 20120608
  Serious: Yes (Other)
  Sender: FDA-Public Use
  Company Number: CA-JNJFOC-20120109214

PATIENT
  Sex: Female
  Weight: 45.5 kg

DRUGS (3)
  1. BUDESONIDE [Concomitant]
     Route: 048
  2. REMICADE [Suspect]
     Indication: CROHN'S DISEASE
     Route: 042
     Dates: start: 20100301
  3. IMURAN [Concomitant]
     Route: 048

REACTIONS (3)
  - VOMITING [None]
  - HAEMOPTYSIS [None]
  - NAUSEA [None]
